FAERS Safety Report 5076500-0 (Version None)
Quarter: 2006Q3

REPORT INFORMATION
  Report Type: 
  Country: None (occurrence: None)
  Receive Date: 20060725
  Receipt Date: 20060523
  Transmission Date: 20061208
  Serious: No
  Sender: FDA-Public Use
  Company Number: 200613700BWH

PATIENT
  Age: 70 Year
  Sex: Female

DRUGS (5)
  1. NEXAVAR [Suspect]
     Indication: RENAL CELL CARCINOMA STAGE UNSPECIFIED
     Dosage: 400 MG, BID, ORAL
     Route: 048
     Dates: start: 20060201
  2. MORPHINE [Concomitant]
  3. OXYCODONE HCL [Concomitant]
  4. GLUCOTROL XL [Concomitant]
  5. ACTOPLUS MET [Concomitant]

REACTIONS (4)
  - GAIT DISTURBANCE [None]
  - INFECTIOUS MONONUCLEOSIS [None]
  - PAIN IN EXTREMITY [None]
  - UPPER RESPIRATORY TRACT INFECTION [None]
